FAERS Safety Report 5734868-3 (Version None)
Quarter: 2008Q2

REPORT INFORMATION
  Report Type: 
  Country: None (occurrence: None)
  Receive Date: 20080512
  Receipt Date: 20080507
  Transmission Date: 20081010
  Serious: Yes (Other)
  Sender: FDA-Public Use
  Company Number: A0726794A

PATIENT
  Age: 11 Year
  Sex: Male

DRUGS (2)
  1. BACTROBAN [Suspect]
     Dosage: 1APP THREE TIMES PER DAY
     Route: 061
     Dates: start: 20080503, end: 20080504
  2. NO CONCURRENT MEDICATION [Concomitant]

REACTIONS (2)
  - CELLULITIS [None]
  - ERYTHEMA [None]
